FAERS Safety Report 26009135 (Version 1)
Quarter: 2025Q4

REPORT INFORMATION
  Report Type: Spontaneous
  Country: EU (occurrence: EU)
  Receive Date: 20251107
  Receipt Date: 20251107
  Transmission Date: 20260117
  Serious: Yes (Hospitalization, Other)
  Sender: BRISTOL-MYERS SQUIBB COMPANY
  Company Number: EU-ROCHE-10000273445

PATIENT
  Age: 61 Year
  Sex: Female
  Weight: 55.9 kg

DRUGS (15)
  1. PACLITAXEL [Suspect]
     Active Substance: PACLITAXEL
     Indication: Triple negative breast cancer
     Dosage: ON 23-OCT-2024, SHE RECEIVED HER MOST RECENT DOSE OF NAB PACLITAXEL 170 MG PRIOR TO AE.?CUMULATIVE DOSE : 2040MG
     Route: 042
     Dates: start: 20240729, end: 20241023
  2. ATEZOLIZUMAB [Suspect]
     Active Substance: ATEZOLIZUMAB
     Indication: Triple negative breast cancer
     Dosage: ON 23-APR-2025, SHE RECEIVED HER MOST RECENT DOSE OF ATEZOLIZUMAB 1200 MG PRIOR TO AE. CYCLE 3 DAY 1 LAST CYCLE OF AC + ATEZOLIZUMAB + TIRAGOLUMAB ON 08/01/2025.  ?CUMULATIVE DOSE: 13200MG
     Route: 042
     Dates: start: 20240729, end: 20250423
  3. TIRAGOLUMAB [Suspect]
     Active Substance: TIRAGOLUMAB
     Indication: Triple negative breast cancer
     Dosage: ON 23-APR-2025, SHE RECEIVED HER MOST RECENT DOSE OF TIRAGOLIMAB 600 MG  PRIOR TO AE.?LAST CYCLE OF AC + ATEZOLIZUMAB + TIRAGOLUMAB ON 08/01/2025.??CUMULATIVE DOSE TIRAGOLUMAB: 6600MG
     Route: 042
     Dates: start: 20240729, end: 20250423
  4. CAPECITABINE [Suspect]
     Active Substance: CAPECITABINE
     Indication: Triple negative breast cancer
     Dosage: 25-APR-2025: LAST DOSE RECEIVED 2000 MG
     Route: 048
     Dates: start: 20250318, end: 20250425
  5. CAPECITABINE [Suspect]
     Active Substance: CAPECITABINE
     Dosage: 1300 MG 5/7 DAYS DURING RADIOTHERAPY: SUSPENDED
     Route: 048
  6. CARBOPLATIN [Suspect]
     Active Substance: CARBOPLATIN
     Indication: Triple negative breast cancer
     Dosage: ON 08-OCT-2024, SHE RECEIVED HER MOST RECENT DOSE OF CARBOPLATINE 450 MG PRIOR TO AE.?CUMULATIVE DOSE:1940
     Route: 042
     Dates: start: 20240729, end: 20241008
  7. CARBOPLATIN [Suspect]
     Active Substance: CARBOPLATIN
     Dosage: ON 08-OCT-2024, SHE RECEIVED HER MOST RECENT DOSE OF CARBOPLATINE 450 MG PRIOR TO AE.
     Route: 042
  8. CYCLOPHOSPHAMIDE [Suspect]
     Active Substance: CYCLOPHOSPHAMIDE
     Indication: Triple negative breast cancer
     Dosage: ON 08-JAN-2025, SHE RECEIVED HER MOST RECENT DODSE OF CYCLOPHOSPHAMIDE 600 MG/M2 PRIOR TO AE. ?LAST DOSE: 800MG?CUMULATIVE DOSE:3760??CYCLE 8 DAY 1
     Route: 042
     Dates: start: 20241107, end: 20250108
  9. DOXORUBICIN [Suspect]
     Active Substance: DOXORUBICIN
     Indication: Triple negative breast cancer
     Dosage: ON 08-JAN-2025, SHE RECEIVED HER MOST RECENT DOSE OF DOXORUBICIN 60 MG/M2 PRIOR TO AE.?CUMULATIVE DOSE: 312MG?LAST DOSE: 78MG
     Route: 042
     Dates: start: 20241107, end: 20250108
  10. DOXORUBICIN [Suspect]
     Active Substance: DOXORUBICIN
  11. LEVOTHYROXINE [Concomitant]
     Active Substance: LEVOTHYROXINE
     Indication: Thyroidectomy
     Route: 048
  12. LEVOTHYROXINE [Concomitant]
     Active Substance: LEVOTHYROXINE
     Route: 048
  13. ATORVASTATIN [Concomitant]
     Active Substance: ATORVASTATIN
     Indication: Product used for unknown indication
     Route: 048
  14. ZOLPIDEM [Concomitant]
     Active Substance: ZOLPIDEM TARTRATE
     Indication: Product used for unknown indication
     Route: 048
  15. SORBILINE [Concomitant]
     Indication: Product used for unknown indication

REACTIONS (1)
  - Colitis [Recovered/Resolved]

NARRATIVE: CASE EVENT DATE: 20250425
